FAERS Safety Report 10512359 (Version 6)
Quarter: 2015Q2

REPORT INFORMATION
  Report Type: Report from Study
  Country: SG (occurrence: SG)
  Receive Date: 20141010
  Receipt Date: 20150413
  Transmission Date: 20150821
  Serious: Yes (Hospitalization)
  Sender: FDA-Public Use
  Company Number: SG-B.I. PHARMACEUTICALS,INC./RIDGEFIELD-2012-BP-21422BP

PATIENT
  Age: 46 Year
  Sex: Female
  Weight: 78.9 kg

DRUGS (6)
  1. PROCTOSEDYL [Concomitant]
     Active Substance: DIBUCAINE HYDROCHLORIDE\HYDROCORTISONE
     Indication: HAEMORRHOIDS
     Dosage: FORMULATION: OINTMENT
     Route: 061
     Dates: start: 20121004
  2. BIBW 2992 [Suspect]
     Active Substance: AFATINIB
     Indication: BREAST CANCER METASTATIC
     Dosage: 40 MG
     Route: 048
     Dates: start: 20120825, end: 20120830
  3. BIBW 2992 [Suspect]
     Active Substance: AFATINIB
     Dosage: 30 MG
     Route: 048
     Dates: start: 20120906, end: 20120919
  4. DAFLON [Concomitant]
     Active Substance: DIOSMIN\HESPERIDIN
     Indication: HAEMORRHOIDS
     Dosage: 2000 MG
     Route: 048
     Dates: start: 20121005
  5. VINORELBINE [Suspect]
     Active Substance: VINORELBINE\VINORELBINE TARTRATE
     Indication: BREAST CANCER METASTATIC
     Dosage: 47 MG
     Route: 042
     Dates: start: 20120824, end: 20120913
  6. BIBW 2992 [Suspect]
     Active Substance: AFATINIB
     Dosage: 20 MG
     Route: 048
     Dates: start: 20121004

REACTIONS (4)
  - Back pain [Recovered/Resolved]
  - Phlebitis [Recovered/Resolved]
  - Pyrexia [Recovered/Resolved]
  - Abdominal pain [Recovered/Resolved]

NARRATIVE: CASE EVENT DATE: 20120826
